FAERS Safety Report 4827864-1 (Version None)
Quarter: 2005Q4

REPORT INFORMATION
  Report Type: 
  Country: None (occurrence: None)
  Receive Date: 20051114
  Receipt Date: 20051114
  Transmission Date: 20060501
  Serious: Yes (Life-Threatening, Hospitalization)
  Sender: FDA-Public Use
  Company Number: None

PATIENT
  Sex: Male

DRUGS (1)
  1. ALEVE [Suspect]
     Indication: BACK PAIN
     Dosage: 20 TABLETS   DAILY   PO
     Route: 048

REACTIONS (3)
  - ANAEMIA [None]
  - GASTROINTESTINAL HAEMORRHAGE [None]
  - MELAENA [None]
